FAERS Safety Report 5523568-0 (Version None)
Quarter: 2007Q4

REPORT INFORMATION
  Report Type: 
  Country: None (occurrence: None)
  Receive Date: 20071121
  Receipt Date: 20071113
  Transmission Date: 20080405
  Serious: Yes (Death, Hospitalization, Other)
  Sender: FDA-Public Use
  Company Number: US-ROCHE-531992

PATIENT
  Age: 46 Year
  Sex: Male

DRUGS (6)
  1. GANCICLOVIR [Suspect]
     Indication: CYTOMEGALOVIRUS INFECTION
     Dosage: INDUCTION
     Route: 042
  2. GANCICLOVIR [Suspect]
     Route: 042
  3. FOSCARNET [Suspect]
     Indication: CYTOMEGALOVIRUS INFECTION
     Dosage: ADDED ON WEEK 12
     Route: 042
  4. CIDOFOVIR [Suspect]
     Indication: CYTOMEGALOVIRUS INFECTION
     Route: 065
  5. LEFLUNOMIDE [Suspect]
     Indication: DRUG USE FOR UNKNOWN INDICATION
     Route: 048
  6. LEFLUNOMIDE [Suspect]
     Route: 048

REACTIONS (7)
  - ACUTE GRAFT VERSUS HOST DISEASE IN INTESTINE [None]
  - CYTOMEGALOVIRUS ANTIGEN POSITIVE [None]
  - CYTOMEGALOVIRUS COLITIS [None]
  - ENCEPHALITIS CYTOMEGALOVIRUS [None]
  - PANCYTOPENIA [None]
  - RENAL FAILURE CHRONIC [None]
  - SEPSIS [None]
